FAERS Safety Report 7900005-X (Version None)
Quarter: 2011Q4

REPORT INFORMATION
  Report Type: 
  Country: None (occurrence: None)
  Receive Date: 20111107
  Receipt Date: 20111101
  Transmission Date: 20120403
  Serious: No
  Sender: FDA-Public Use
  Company Number: US-AMGEN-USASP2011046854

PATIENT
  Age: 46 Year
  Sex: Female
  Weight: 105.22 kg

DRUGS (7)
  1. ENBREL [Suspect]
     Indication: RHEUMATOID ARTHRITIS
     Dosage: 50 MG, QWK
     Dates: start: 20080101
  2. MAXIFED DMX [Concomitant]
     Dosage: 60-20-400 MG TABS
  3. HYDROCODONE BITARTRATE AND ACETAMINOPHEN [Concomitant]
     Indication: PAIN
     Dosage: 5-325 MG TABS Q6H PRN
     Route: 048
  4. ANTIBIOTICS [Concomitant]
     Indication: FUNGAL INFECTION
  5. MULTIVITAMINS PLUS IRON [Concomitant]
  6. ADVAIR HFA [Concomitant]
  7. PREDNISONE [Concomitant]
     Dosage: 5 MG, QD ONE-TWO TABS
     Route: 048

REACTIONS (11)
  - OSTEOPOROSIS POSTMENOPAUSAL [None]
  - SPINAL OSTEOARTHRITIS [None]
  - SINUSITIS [None]
  - MENOPAUSAL SYMPTOMS [None]
  - IRON DEFICIENCY ANAEMIA [None]
  - OSTEOARTHRITIS [None]
  - ANAEMIA [None]
  - ARTHRALGIA [None]
  - POLYARTHRITIS [None]
  - PALINDROMIC RHEUMATISM [None]
  - INCREASED TENDENCY TO BRUISE [None]
